FAERS Safety Report 9402190 (Version 1)
Quarter: 2013Q3

REPORT INFORMATION
  Report Type: Spontaneous
  Country: US (occurrence: US)
  Receive Date: 20130716
  Receipt Date: 20130716
  Transmission Date: 20140515
  Serious: Yes (Hospitalization)
  Sender: FDA-Public Use
  Company Number: US-COVIDIEN/TYCO HEALTHCARE/MALLINCKRODT-T201303660

PATIENT
  Sex: Female
  Weight: 47.62 kg

DRUGS (3)
  1. FENTANYL TRANSDERMAL SYSTEM [Suspect]
     Indication: PAIN
     Dosage: 100 UG/HR , QOD
     Route: 062
     Dates: start: 201306
  2. FENTANYL TRANSDERMAL SYSTEM [Suspect]
     Dosage: 25 UG/HR, QOD
     Route: 062
     Dates: start: 201306
  3. FENTANYL [Concomitant]
     Dosage: UNK

REACTIONS (6)
  - Chest discomfort [Unknown]
  - Pulmonary oedema [Unknown]
  - Dyspnoea [Recovering/Resolving]
  - Productive cough [Unknown]
  - Rhinorrhoea [Unknown]
  - Nasal congestion [Unknown]
